FAERS Safety Report 25385999 (Version 1)
Quarter: 2025Q2

REPORT INFORMATION
  Report Type: Report from Study
  Country: IT (occurrence: IT)
  Receive Date: 20250602
  Receipt Date: 20250602
  Transmission Date: 20250717
  Serious: Yes (Death, Life-Threatening, Hospitalization)
  Sender: RANBAXY
  Company Number: IT-SUN PHARMACEUTICAL INDUSTRIES LTD-2025R1-510074

PATIENT
  Age: 90 Year

DRUGS (15)
  1. ENOXAPARIN SODIUM [Suspect]
     Active Substance: ENOXAPARIN SODIUM
     Indication: Arrhythmia
     Route: 065
     Dates: start: 20150112
  2. ENOXAPARIN SODIUM [Suspect]
     Active Substance: ENOXAPARIN SODIUM
     Route: 065
     Dates: start: 20150113
  3. SODIUM CHLORIDE [Suspect]
     Active Substance: SODIUM CHLORIDE
     Indication: Arrhythmia
     Route: 065
     Dates: start: 20150112
  4. THEOPHYLLINE [Suspect]
     Active Substance: THEOPHYLLINE
     Indication: Arrhythmia
     Route: 042
     Dates: start: 20250112
  5. OMEPRAZOLE [Suspect]
     Active Substance: OMEPRAZOLE
     Indication: Arrhythmia
     Route: 065
     Dates: start: 20250112
  6. AMINOPHYLLINE [Suspect]
     Active Substance: AMINOPHYLLINE
     Indication: Arrhythmia
     Route: 065
     Dates: start: 20150112
  7. DUTASTERIDE [Suspect]
     Active Substance: DUTASTERIDE
     Indication: Arrhythmia
     Route: 065
     Dates: start: 20150112
  8. DUTASTERIDE [Suspect]
     Active Substance: DUTASTERIDE
     Route: 065
     Dates: start: 20150113
  9. IRBESARTAN [Suspect]
     Active Substance: IRBESARTAN
     Indication: Arrhythmia
     Route: 065
     Dates: start: 20150113
  10. IRBESARTAN [Suspect]
     Active Substance: IRBESARTAN
     Route: 065
     Dates: start: 20150114
  11. FUROSEMIDE [Suspect]
     Active Substance: FUROSEMIDE
     Indication: Arrhythmia
     Route: 065
  12. SILODOSIN [Suspect]
     Active Substance: SILODOSIN
     Indication: Arrhythmia
     Route: 065
     Dates: start: 20150113
  13. BISOPROLOL [Suspect]
     Active Substance: BISOPROLOL
     Indication: Arrhythmia
     Route: 065
     Dates: start: 20150114
  14. DOPAMINE [Suspect]
     Active Substance: DOPAMINE HYDROCHLORIDE
     Indication: Arrhythmia
     Route: 065
     Dates: start: 20150114
  15. HYDROCORTISONE [Suspect]
     Active Substance: HYDROCORTISONE
     Indication: Arrhythmia
     Route: 065
     Dates: start: 20150114

REACTIONS (1)
  - Treatment failure [Fatal]
